FAERS Safety Report 15905903 (Version 1)
Quarter: 2020Q3

REPORT INFORMATION
  Report Type: Spontaneous
  Country: CN (occurrence: CN)
  Receive Date: 20190204
  Receipt Date: 20190204
  Transmission Date: 20201105
  Serious: Yes (Hospitalization)
  Sender: FDA-Public Use
  Company Number: IND-CN-009507513-1901CHN009822

PATIENT
  Age: 83 Year
  Sex: Male
  Weight: 70 kg

DRUGS (10)
  1. TERAZOSIN HYDROCHLORIDE. [Concomitant]
     Active Substance: TERAZOSIN HYDROCHLORIDE
     Dosage: 2 MILLIGRAM, QPM
     Route: 048
  2. ETORICOXIB. [Suspect]
     Active Substance: ETORICOXIB
     Indication: OSTEOPOROSIS
     Dosage: 60 MILLIGRAM, BID
     Dates: start: 20171121, end: 20171124
  3. WARFARIN [Interacting]
     Active Substance: WARFARIN
     Dosage: 4.5 MILLIGRAM, QD
     Route: 048
     Dates: start: 20171118, end: 20171124
  4. METOPROLOL SUCCINATE. [Concomitant]
     Active Substance: METOPROLOL SUCCINATE
     Dosage: 47.5 MG, QD
     Route: 048
  5. ROSUVASTATIN CALCIUM. [Concomitant]
     Active Substance: ROSUVASTATIN CALCIUM
     Dosage: 10 MILLIGRAM, QD
     Route: 048
     Dates: start: 20171113
  6. IRBESARTAN. [Concomitant]
     Active Substance: IRBESARTAN
     Dosage: 0.15 G, QD
     Route: 048
  7. WARFARIN [Interacting]
     Active Substance: WARFARIN
     Dosage: 3 MILLIGRAM, QD
     Route: 048
     Dates: start: 20171124, end: 20171126
  8. HEPARIN SODIUM. [Concomitant]
     Active Substance: HEPARIN SODIUM
     Dosage: 5000 IU, Q12H
     Route: 042
     Dates: start: 20171113
  9. WARFARIN [Interacting]
     Active Substance: WARFARIN
     Dosage: 3 MILLIGRAM, QD
     Route: 048
     Dates: start: 20171113
  10. ISOSORBIDE MONONITRATE. [Concomitant]
     Active Substance: ISOSORBIDE MONONITRATE
     Dosage: 20 MILLIGRAM, BID
     Dates: start: 20171113

REACTIONS (4)
  - Epistaxis [Recovered/Resolved]
  - Product use in unapproved indication [Unknown]
  - International normalised ratio increased [Recovered/Resolved]
  - Drug interaction [Unknown]

NARRATIVE: CASE EVENT DATE: 20171124
